FAERS Safety Report 24614028 (Version 2)
Quarter: 2024Q4

REPORT INFORMATION
  Report Type: Report from Study
  Country: NL (occurrence: NL)
  Receive Date: 20241113
  Receipt Date: 20241117
  Transmission Date: 20250114
  Serious: Yes (Hospitalization, Other)
  Sender: ABBVIE
  Company Number: NL-ABBVIE-6000347

PATIENT
  Age: 75 Year
  Sex: Male

DRUGS (8)
  1. CARBIDOPA\LEVODOPA [Suspect]
     Active Substance: CARBIDOPA\LEVODOPA
     Indication: Parkinson^s disease
     Dosage: LD 0.90, BIR 0.33, HIR 0.33, LIR 0.18, ED 0.15?REMAINS AT 24 HOURS
     Route: 058
     Dates: start: 20240529, end: 20240603
  2. CARBIDOPA\LEVODOPA [Suspect]
     Active Substance: CARBIDOPA\LEVODOPA
     Dosage: LD 0.90, BIR 0.37, HIR 0.37, LIR 0.22, ED 0.15?REMAINS AT 24 HOURS
     Route: 058
     Dates: start: 20240619, end: 20240725
  3. CARBIDOPA\LEVODOPA [Suspect]
     Active Substance: CARBIDOPA\LEVODOPA
     Dosage: LD 0.90, BIR 0.35, HIR 0.35, LIR 0.20, ED 0.15?REMAINS AT 24 HOURS
     Route: 058
     Dates: start: 20240603, end: 20240612
  4. CARBIDOPA\LEVODOPA [Suspect]
     Active Substance: CARBIDOPA\LEVODOPA
     Dosage: LD 0.90, BIR 0.37, HIR 0.37, LIR 0.20, ED 0.15?REMAINS AT 24 HOURS
     Route: 058
     Dates: start: 20240612, end: 20240619
  5. CARBIDOPA\LEVODOPA [Suspect]
     Active Substance: CARBIDOPA\LEVODOPA
     Dosage: LD 0.90, BIR 0.37, HIR 0.37, LIR 0.25, ED 0.20?REMAINS AT 24 HOURS
     Route: 058
     Dates: start: 20240829
  6. CARBIDOPA\LEVODOPA [Suspect]
     Active Substance: CARBIDOPA\LEVODOPA
     Dosage: LD 0.90, BIR 0.31, HIR 0.31, LIR 0.16, ED 0.10?REMAINS AT 24 HOURS
     Route: 058
     Dates: start: 20240527, end: 20240528
  7. CARBIDOPA\LEVODOPA [Suspect]
     Active Substance: CARBIDOPA\LEVODOPA
     Dosage: LD 0.90, BIR 0.33, HIR 0.33, LIR 0.16, ED 0.10?REMAINS AT 24 HOURS
     Route: 058
     Dates: start: 20240528, end: 20240529
  8. CARBIDOPA\LEVODOPA [Suspect]
     Active Substance: CARBIDOPA\LEVODOPA
     Dosage: LD 0.90, BIR 0.37, HIR 0.37, LIR 0.22, ED 0.15?REMAINS AT 24 HOURS
     Route: 058
     Dates: start: 20240725, end: 20240829

REACTIONS (7)
  - Upper limb fracture [Not Recovered/Not Resolved]
  - Bedridden [Not Recovered/Not Resolved]
  - Fall [Recovered/Resolved with Sequelae]
  - Delirium [Recovered/Resolved]
  - Device loosening [Not Recovered/Not Resolved]
  - Fall [Recovered/Resolved]
  - Delirium [Not Recovered/Not Resolved]

NARRATIVE: CASE EVENT DATE: 20241101
